FAERS Safety Report 9350748 (Version 2)
Quarter: 2013Q4

REPORT INFORMATION
  Report Type: Report from Study
  Country: FR (occurrence: FR)
  Receive Date: 20130617
  Receipt Date: 20131119
  Transmission Date: 20140711
  Serious: Yes (Hospitalization, Other)
  Sender: FDA-Public Use
  Company Number: FR-ROCHE-1204837

PATIENT
  Age: 35 Year
  Sex: Female
  Weight: 38 kg

DRUGS (20)
  1. RIBAVIRIN [Suspect]
     Indication: CHRONIC HEPATITIS C
     Route: 048
     Dates: start: 20121008, end: 20130130
  2. RIBAVIRIN [Suspect]
     Route: 048
     Dates: end: 20130206
  3. PEGINTERFERON ALFA-2B [Suspect]
     Indication: CHRONIC HEPATITIS C
     Route: 058
     Dates: start: 20121008, end: 20130128
  4. LASILIX [Suspect]
     Indication: CARDIAC FAILURE
     Route: 048
     Dates: start: 20130131
  5. SPECIAFOLDINE [Concomitant]
     Indication: HAEMOLYTIC ANAEMIA
     Route: 048
  6. ALPRAZOLAM [Concomitant]
  7. LANTUS [Concomitant]
     Indication: TYPE 1 DIABETES MELLITUS
     Route: 058
  8. NOVORAPID [Concomitant]
     Route: 065
  9. EXJADE [Concomitant]
     Indication: HAEMOCHROMATOSIS
     Route: 048
     Dates: start: 201208
  10. AVLOCARDYL [Concomitant]
     Indication: VARICES OESOPHAGEAL
     Dosage: IN MORNING
     Route: 048
  11. AVLOCARDYL [Concomitant]
     Dosage: IN MORNING
     Route: 048
  12. DIACIN [Concomitant]
     Route: 048
  13. NEDAL [Concomitant]
     Indication: HAEMOLYTIC ANAEMIA
     Route: 048
  14. NEORAL [Concomitant]
     Indication: HAEMOLYTIC ANAEMIA
     Route: 048
  15. ORACILLINE [Concomitant]
     Route: 048
  16. CORDARONE [Concomitant]
     Indication: ATRIAL TACHYCARDIA
     Dosage: FREQUENCY: 5 DAYS/7
     Route: 048
     Dates: start: 20130207
  17. NOVOMIX [Concomitant]
  18. DESFERAL [Concomitant]
  19. FERRIPROX [Concomitant]
  20. ALDACTONE (FRANCE) [Concomitant]
     Route: 065
     Dates: start: 20130403, end: 20130415

REACTIONS (8)
  - Anaemia [Recovered/Resolved]
  - Cardiac failure [Recovered/Resolved]
  - Renal failure [Recovered/Resolved]
  - Renal failure [Unknown]
  - Vitamin C deficiency [Unknown]
  - Atrial tachycardia [Unknown]
  - Diabetes mellitus [Unknown]
  - Pulmonary oedema [Unknown]
